FAERS Safety Report 25105834 (Version 1)
Quarter: 2025Q1

REPORT INFORMATION
  Report Type: Spontaneous
  Country: US (occurrence: None)
  Receive Date: 20250320
  Receipt Date: 20250320
  Transmission Date: 20250409
  Serious: No
  Sender: FDA-CTU
  Company Number: None

PATIENT
  Age: 75 Year
  Sex: Male

DRUGS (1)
  1. CLOPIDOGREL BISULFATE [Suspect]
     Active Substance: CLOPIDOGREL BISULFATE
     Indication: Thrombosis
     Dosage: FREQUENCY : DAILY;?
     Route: 048
     Dates: start: 20250109, end: 20250115

REACTIONS (1)
  - Pruritus [None]

NARRATIVE: CASE EVENT DATE: 20250115
